FAERS Safety Report 4445488-5 (Version None)
Quarter: 2004Q3

REPORT INFORMATION
  Report Type: 
  Country: None (occurrence: None)
  Receive Date: 20040811
  Receipt Date: 20040405
  Transmission Date: 20050211
  Serious: Yes (Life-Threatening)
  Sender: FDA-Public Use
  Company Number: 236259

PATIENT
  Age: 62 Year
  Sex: Female
  Weight: 57.1 kg

DRUGS (3)
  1. NOVOLIN L (INSULIN HUMAN) SUSPENSION FOR INJECTION, 100 IU/ML [Suspect]
     Indication: DIABETES MELLITUS INSULIN-DEPENDENT
     Dosage: 3 IU, QD, SUBCUTANEOUS
     Route: 058
     Dates: start: 19940101
  2. NOVOLIN R [Concomitant]
  3. ULTRALENTE ILETIN I (INSULIN ZINC SUSPENSION) [Concomitant]

REACTIONS (1)
  - BLOOD GLUCOSE DECREASED [None]
